FAERS Safety Report 10615852 (Version 1)
Quarter: 2014Q4

REPORT INFORMATION
  Report Type: Spontaneous
  Country: US (occurrence: None)
  Receive Date: 20141125
  Receipt Date: 20141125
  Transmission Date: 20150529
  Serious: Yes (Life-Threatening, Hospitalization)
  Sender: FDA-Public Use
  Company Number: None

PATIENT
  Age: 60 Year
  Sex: Male
  Weight: 92.7 kg

DRUGS (2)
  1. ENOXAPARIN (GENERIC) [Suspect]
     Active Substance: ENOXAPARIN
     Dosage: ML.
     Route: 058
     Dates: start: 20141105, end: 20141110
  2. WARFARIN [Suspect]
     Active Substance: WARFARIN
     Indication: PULMONARY EMBOLISM
     Dosage: MG.
     Route: 048
     Dates: start: 20131228, end: 20141110

REACTIONS (5)
  - Haemorrhage [None]
  - Post procedural haemorrhage [None]
  - Gastric haemorrhage [None]
  - International normalised ratio increased [None]
  - Anaemia [None]

NARRATIVE: CASE EVENT DATE: 20141110
